FAERS Safety Report 8428995-X (Version None)
Quarter: 2012Q2

REPORT INFORMATION
  Report Type: 
  Country: None (occurrence: None)
  Receive Date: 20120605
  Receipt Date: 20120507
  Transmission Date: 20120825
  Serious: Yes (Hospitalization, Other)
  Sender: FDA-Public Use
  Company Number: 2012P1023540

PATIENT
  Age: 56 Year
  Sex: Female

DRUGS (1)
  1. PREDNISOLONE [Suspect]
     Indication: CHRONIC GRAFT VERSUS HOST DISEASE
     Dosage: 10 MG;QD;

REACTIONS (8)
  - HYPOTENSION [None]
  - PNEUMOCYSTIS JIROVECI PNEUMONIA [None]
  - TACHYCARDIA [None]
  - URINARY TRACT INFECTION ENTEROCOCCAL [None]
  - CLOSTRIDIAL INFECTION [None]
  - CONFUSIONAL STATE [None]
  - RESPIRATORY MUSCLE WEAKNESS [None]
  - RESPIRATORY FAILURE [None]
